FAERS Safety Report 17349198 (Version 4)
Quarter: 2020Q2

REPORT INFORMATION
  Report Type: Report from Study
  Country: None (occurrence: US)
  Receive Date: 20200130
  Receipt Date: 20200514
  Transmission Date: 20200713
  Serious: Yes (Other)
  Sender: FDA-Public Use
  Company Number: US-ABBVIE-20P-163-3253746-00

PATIENT
  Age: 37 Year
  Sex: Female

DRUGS (3)
  1. SULFASALAZINE. [Concomitant]
     Active Substance: SULFASALAZINE
     Indication: PRODUCT USED FOR UNKNOWN INDICATION
  2. RINVOQ [Suspect]
     Active Substance: UPADACITINIB
     Indication: RHEUMATOID ARTHRITIS
     Route: 048
     Dates: start: 201911, end: 202001
  3. METHOTREXATE. [Concomitant]
     Active Substance: METHOTREXATE
     Indication: PRODUCT USED FOR UNKNOWN INDICATION

REACTIONS (10)
  - Tooth fracture [Recovered/Resolved]
  - Osteomyelitis [Recovered/Resolved]
  - Diarrhoea [Recovering/Resolving]
  - Pyrexia [Recovered/Resolved]
  - Cyst rupture [Recovered/Resolved]
  - Tooth abscess [Recovered/Resolved]
  - Tooth infection [Recovered/Resolved]
  - Pain in jaw [Recovering/Resolving]
  - Eyelid cyst [Recovering/Resolving]
  - Scleritis [Recovered/Resolved]

NARRATIVE: CASE EVENT DATE: 202001
